FAERS Safety Report 9144865 (Version 1)
Quarter: 2013Q1

REPORT INFORMATION
  Report Type: Spontaneous
  Country: ES (occurrence: ES)
  Receive Date: 20130307
  Receipt Date: 20130307
  Transmission Date: 20140127
  Serious: Yes (Hospitalization)
  Sender: FDA-Public Use
  Company Number: ES-009507513-1303ESP000721

PATIENT
  Age: 47 Year
  Sex: Male

DRUGS (7)
  1. VICTRELIS [Suspect]
     Dosage: 4-4-4
     Route: 048
     Dates: start: 20120607, end: 20120908
  2. REBETOL [Suspect]
     Dosage: 2-0-2
     Route: 048
     Dates: start: 20120507, end: 20120908
  3. PEGINTRON [Suspect]
     Dosage: 0.5 ML, UNK
     Route: 030
     Dates: start: 20120507, end: 20120908
  4. KALETRA [Concomitant]
     Dosage: 200/50 MG UNK, UNK
     Route: 048
     Dates: start: 2002
  5. ISENTRESS [Concomitant]
     Dosage: 1-0-1
     Route: 048
     Dates: start: 2008
  6. LEXATIN [Concomitant]
     Dosage: 1-0-0
     Route: 048
     Dates: start: 2000
  7. ZOLPIDEM TARTRATE [Concomitant]
     Dosage: 0-0-1
     Route: 048
     Dates: start: 2000

REACTIONS (2)
  - Depression [Recovered/Resolved]
  - Suicide attempt [Recovered/Resolved]
